FAERS Safety Report 6572367-X (Version None)
Quarter: 2010Q1

REPORT INFORMATION
  Report Type: 
  Country: None (occurrence: None)
  Receive Date: 20100205
  Receipt Date: 20100126
  Transmission Date: 20100710
  Serious: Yes (Hospitalization)
  Sender: FDA-Public Use
  Company Number: US-WATSON-2010-01159

PATIENT
  Age: 17 Year
  Sex: Male

DRUGS (1)
  1. TETRACYCLINE HYDROCHLORIDE [Suspect]
     Indication: ACNE
     Dosage: UNK
     Route: 048

REACTIONS (1)
  - DRUG RASH WITH EOSINOPHILIA AND SYSTEMIC SYMPTOMS [None]
